FAERS Safety Report 13930810 (Version 2)
Quarter: 2017Q4

REPORT INFORMATION
  Report Type: Report from Study
  Country: US (occurrence: US)
  Receive Date: 20170901
  Receipt Date: 20171129
  Transmission Date: 20180320
  Serious: Yes (Hospitalization, Other)
  Sender: FDA-Public Use
  Company Number: PHEH2017US028066

PATIENT
  Age: 78 Year
  Sex: Female
  Weight: 95.24 kg

DRUGS (3)
  1. STATIN [Concomitant]
     Active Substance: UNSPECIFIED INGREDIENT
     Indication: PRODUCT USED FOR UNKNOWN INDICATION
     Route: 065
  2. ENTRESTO [Suspect]
     Active Substance: SACUBITRIL\VALSARTAN
     Indication: CARDIAC FAILURE CHRONIC
     Dosage: 1 DF (24/26 MG), BID
     Route: 048
     Dates: start: 20170706, end: 20170715
  3. INSULIN [Concomitant]
     Active Substance: INSULIN NOS
     Indication: PRODUCT USED FOR UNKNOWN INDICATION
     Route: 065

REACTIONS (4)
  - Infection [Unknown]
  - Arrhythmia [Unknown]
  - Hyperglycaemia [Recovered/Resolved]
  - Impaired healing [Unknown]

NARRATIVE: CASE EVENT DATE: 20170706
